FAERS Safety Report 17833805 (Version 1)
Quarter: 2020Q2

REPORT INFORMATION
  Report Type: Spontaneous
  Country: US (occurrence: US)
  Receive Date: 20200528
  Receipt Date: 20200528
  Transmission Date: 20200714
  Serious: Yes (Hospitalization, Disabling, Other)
  Sender: FDA-Public Use
  Company Number: US-SA-2020SA135367

PATIENT

DRUGS (2)
  1. ZANTAC [Suspect]
     Active Substance: RANITIDINE HYDROCHLORIDE
     Dosage: UNK
     Dates: start: 1985
  2. ZANTAC [Suspect]
     Active Substance: RANITIDINE HYDROCHLORIDE
     Dosage: UNK
     Dates: start: 1997, end: 2018

REACTIONS (8)
  - Bladder cancer [Unknown]
  - Somatic symptom disorder [Unknown]
  - Injury [Unknown]
  - Physical disability [Unknown]
  - Pain [Unknown]
  - Mental disorder [Unknown]
  - Emotional distress [Unknown]
  - Neoplasm malignant [Unknown]
